FAERS Safety Report 24037404 (Version 1)
Quarter: 2024Q3

REPORT INFORMATION
  Report Type: Report from Study
  Country: US (occurrence: US)
  Receive Date: 20240702
  Receipt Date: 20240702
  Transmission Date: 20241017
  Serious: Yes (Hospitalization)
  Sender: ABBVIE
  Company Number: US-ABBVIE-5819603

PATIENT
  Age: 65 Year
  Sex: Male
  Weight: 85 kg

DRUGS (11)
  1. HUMIRA [Suspect]
     Active Substance: ADALIMUMAB
     Indication: Colitis ulcerative
     Route: 058
     Dates: start: 201312, end: 20181204
  2. HUMIRA [Suspect]
     Active Substance: ADALIMUMAB
     Route: 058
     Dates: start: 20181217, end: 20190201
  3. HUMIRA [Suspect]
     Active Substance: ADALIMUMAB
     Route: 048
     Dates: start: 20190201, end: 20190528
  4. LISINOPRIL [Concomitant]
     Active Substance: LISINOPRIL
     Indication: Hypertension
     Route: 048
     Dates: start: 2010
  5. ASPIRIN [Concomitant]
     Active Substance: ASPIRIN
     Indication: Prophylaxis
     Route: 048
     Dates: start: 20070613
  6. VITAMIN D [Concomitant]
     Active Substance: VITAMIN D NOS
     Indication: Arthralgia
     Dosage: DOSAGE: 2000 U
     Route: 048
     Dates: start: 2007
  7. BALSALAZIDE [Concomitant]
     Active Substance: BALSALAZIDE
     Indication: Colitis ulcerative
     Route: 048
     Dates: start: 1994, end: 20210429
  8. CANASA [Concomitant]
     Active Substance: MESALAMINE
     Indication: Colitis ulcerative
     Dosage: TIME INTERVAL: AS NECESSARY: 1 OTHER
     Route: 054
     Dates: start: 201612, end: 20210429
  9. VEDOLIZUMAB [Concomitant]
     Active Substance: VEDOLIZUMAB
     Indication: Colitis ulcerative
     Route: 042
     Dates: start: 20210322
  10. ITRACONAZOLE [Concomitant]
     Active Substance: ITRACONAZOLE
     Indication: Histoplasmosis
     Route: 048
     Dates: start: 20210322, end: 20210622
  11. AZATHIOPRINE [Suspect]
     Active Substance: AZATHIOPRINE
     Indication: Colitis ulcerative
     Route: 048
     Dates: start: 1994, end: 20190628

REACTIONS (2)
  - Lumbar spinal stenosis [Recovered/Resolved]
  - Herpes zoster [Recovered/Resolved]

NARRATIVE: CASE EVENT DATE: 20210423
